FAERS Safety Report 7335543-4 (Version None)
Quarter: 2011Q1

REPORT INFORMATION
  Report Type: 
  Country: None (occurrence: None)
  Receive Date: 20110307
  Receipt Date: 20110302
  Transmission Date: 20110831
  Serious: Yes (Hospitalization)
  Sender: FDA-Public Use
  Company Number: JP-PFIZER INC-2011038718

PATIENT
  Age: 69 Year
  Sex: Male

DRUGS (3)
  1. OLMETEC [Suspect]
     Indication: HYPERTENSION
     Dosage: UNK
     Route: 048
     Dates: start: 20090201
  2. CARDENALIN [Suspect]
     Indication: HYPERTENSION
     Dosage: 6 MG, 1X/DAY
     Route: 048
     Dates: start: 20100201
  3. ADALAT [Suspect]
     Indication: HYPERTENSION
     Dosage: UNK
     Route: 048
     Dates: start: 20090201

REACTIONS (2)
  - DIABETES MELLITUS [None]
  - HYPERHIDROSIS [None]
